FAERS Safety Report 24834893 (Version 1)
Quarter: 2025Q1

REPORT INFORMATION
  Report Type: Report from Study
  Country: IN (occurrence: IN)
  Receive Date: 20250113
  Receipt Date: 20250113
  Transmission Date: 20250409
  Serious: Yes (Death)
  Sender: ROCHE
  Company Number: IN-ROCHE-10000133515

PATIENT
  Age: 45 Year
  Sex: Male

DRUGS (1)
  1. TECENTRIQ [Suspect]
     Active Substance: ATEZOLIZUMAB
     Indication: Hepatocellular carcinoma
     Route: 042
     Dates: start: 20241005

REACTIONS (3)
  - Ascites [Unknown]
  - Hypotension [Fatal]
  - Silent myocardial infarction [Fatal]

NARRATIVE: CASE EVENT DATE: 20241201
